FAERS Safety Report 9849610 (Version 2)
Quarter: 2014Q1

REPORT INFORMATION
  Report Type: Spontaneous
  Country: US (occurrence: US)
  Receive Date: 20140128
  Receipt Date: 20140321
  Transmission Date: 20141002
  Serious: Yes (Other)
  Sender: FDA-Public Use
  Company Number: US-PURDUE-USA-2014-0110577

PATIENT
  Sex: Female

DRUGS (2)
  1. OXYCONTIN (NDA 22-272) [Suspect]
     Indication: ROAD TRAFFIC ACCIDENT
     Dosage: 60 MG, BID
     Route: 048
     Dates: start: 201312
  2. OXYCONTIN (NDA 22-272) [Suspect]
     Indication: BACK PAIN
     Dosage: 80 MG, BID
     Route: 048

REACTIONS (1)
  - Hepatic failure [Not Recovered/Not Resolved]
